FAERS Safety Report 5921559-9 (Version None)
Quarter: 2008Q4

REPORT INFORMATION
  Report Type: 
  Country: None (occurrence: None)
  Receive Date: 20081017
  Receipt Date: 20081016
  Transmission Date: 20090506
  Serious: Yes (Death)
  Sender: FDA-Public Use
  Company Number: NZ-BRISTOL-MYERS SQUIBB COMPANY-14371538

PATIENT
  Age: 50 Year
  Sex: Male

DRUGS (2)
  1. ABILIFY [Suspect]
     Dosage: DOSAGE INCREASED FROM 10MG TO 30MG.
  2. OLANZAPINE [Suspect]
     Dosage: DOSAGE DECREASED FROM 30MG TO 15MG.

REACTIONS (2)
  - INSOMNIA [None]
  - MYOCARDIAL INFARCTION [None]
